FAERS Safety Report 4611047-4 (Version None)
Quarter: 2005Q1

REPORT INFORMATION
  Report Type: 
  Country: None (occurrence: None)
  Receive Date: 20050316
  Receipt Date: 20050316
  Transmission Date: 20050727
  Serious: Yes (Hospitalization)
  Sender: FDA-Public Use
  Company Number: None

PATIENT
  Age: 70 Year
  Sex: Male
  Weight: 92.9874 kg

DRUGS (12)
  1. IBUPROFEN [Suspect]
     Indication: PAIN IN EXTREMITY
     Dosage: ORAL;  800.0 MILLIGRAM
     Route: 048
  2. ASPIRIN [Suspect]
     Indication: PAIN IN EXTREMITY
     Dosage: ;325.0 MILLIGRAM
  3. CLOPIDOGREL [Concomitant]
  4. FOSINOPRIL [Concomitant]
  5. FUROSEMIDE [Concomitant]
  6. ISOSORBIDE DINIT. [Concomitant]
  7. METOPROLOL TARTRATE [Concomitant]
  8. M.V.I. [Concomitant]
  9. OMEPRAZOLE [Concomitant]
  10. POTASSIUM CHLORIDE [Concomitant]
  11. SIMVASTATIN [Concomitant]
  12. TERAZOSIN [Concomitant]

REACTIONS (5)
  - ASTHENIA [None]
  - FAECES DISCOLOURED [None]
  - LOWER GASTROINTESTINAL HAEMORRHAGE [None]
  - PAIN IN EXTREMITY [None]
  - UPPER GASTROINTESTINAL HAEMORRHAGE [None]
